FAERS Safety Report 9954580 (Version 1)
Quarter: 2014Q1

REPORT INFORMATION
  Report Type: Report from Study
  Country: US (occurrence: US)
  Receive Date: 20140304
  Receipt Date: 20140304
  Transmission Date: 20141002
  Serious: No
  Sender: FDA-Public Use
  Company Number: US-ABBVIE-13P-163-1082843-00

PATIENT
  Age: 45 Year
  Sex: Female

DRUGS (4)
  1. HUMIRA [Suspect]
     Indication: CROHN^S DISEASE
     Dates: start: 20130329
  2. CELEXA [Concomitant]
     Indication: DEPRESSION
  3. CELEXA [Concomitant]
     Indication: INSOMNIA
  4. KLONOPIN [Concomitant]
     Indication: INSOMNIA
     Dosage: EVERY NIGHT

REACTIONS (1)
  - Injection site pain [Recovered/Resolved]
